FAERS Safety Report 5367834-0 (Version None)
Quarter: 2007Q2

REPORT INFORMATION
  Report Type: 
  Country: None (occurrence: None)
  Receive Date: 20070622
  Receipt Date: 20070613
  Transmission Date: 20071010
  Serious: Yes (Other)
  Sender: FDA-Public Use
  Company Number: FR-PFIZER INC-2006143725

PATIENT
  Sex: Female
  Weight: 73.2 kg

DRUGS (2)
  1. TRIFLUCAN [Suspect]
     Indication: FUNGAL INFECTION
     Dosage: DAILY DOSE:50MG
     Route: 048
     Dates: start: 20060914, end: 20060922
  2. XANAX [Concomitant]

REACTIONS (9)
  - CHOLESTASIS [None]
  - DIABETES MELLITUS NON-INSULIN-DEPENDENT [None]
  - DYSPEPSIA [None]
  - FATIGUE [None]
  - GAMMA-GLUTAMYLTRANSFERASE INCREASED [None]
  - HEPATITIS [None]
  - HYPERTENSION [None]
  - NAUSEA [None]
  - TRANSAMINASES INCREASED [None]
